FAERS Safety Report 7072767-8 (Version None)
Quarter: 2010Q4

REPORT INFORMATION
  Report Type: 
  Country: None (occurrence: None)
  Receive Date: 20101029
  Receipt Date: 20100426
  Transmission Date: 20110411
  Serious: No
  Sender: FDA-Public Use
  Company Number: A0849520A

PATIENT
  Age: 51 Year
  Sex: Female
  Weight: 78.2 kg

DRUGS (2)
  1. ADVAIR DISKUS 100/50 [Suspect]
     Indication: BRONCHITIS
     Dosage: 1PUFF TWICE PER DAY
     Route: 055
     Dates: start: 20100303, end: 20100305
  2. NO CONCURRENT MEDICATION [Concomitant]

REACTIONS (4)
  - BLOOD PRESSURE INCREASED [None]
  - HEADACHE [None]
  - HEART RATE INCREASED [None]
  - PALPITATIONS [None]
